FAERS Safety Report 19375479 (Version 2)
Quarter: 2022Q2

REPORT INFORMATION
  Report Type: Report from Study
  Country: IN (occurrence: IN)
  Receive Date: 20210604
  Receipt Date: 20220422
  Transmission Date: 20220720
  Serious: Yes (Hospitalization, Other)
  Sender: FDA-Public Use
  Company Number: IN-NOVARTISPH-NVSC2021IN120895

PATIENT
  Age: 30 Year
  Sex: Male

DRUGS (30)
  1. SIMULECT [Suspect]
     Active Substance: BASILIXIMAB
     Indication: Renal transplant
     Dosage: 20 MG
     Route: 065
     Dates: start: 20210417
  2. SIMULECT [Suspect]
     Active Substance: BASILIXIMAB
     Dosage: 20 MG
     Route: 065
     Dates: start: 20210421, end: 20210421
  3. TACROLIMUS [Suspect]
     Active Substance: TACROLIMUS
     Indication: Product used for unknown indication
     Dosage: 2 MG, BID (1-0-1) (4 MG/DAY)
     Route: 065
  4. TACROLIMUS [Suspect]
     Active Substance: TACROLIMUS
     Dosage: 4.5 MG (4.5 MG/DAY)
     Route: 065
  5. TACROLIMUS [Suspect]
     Active Substance: TACROLIMUS
     Dosage: 2.25 MG, BID (8AM-0-8PM) (WITHHOLD)
     Route: 065
  6. MICROTAZ [Concomitant]
     Indication: Product used for unknown indication
     Dosage: 4.5 G, BID (1-0-1) FOR 10 DAYS
     Route: 065
  7. PREDNISOLONE [Concomitant]
     Active Substance: PREDNISOLONE
     Indication: Product used for unknown indication
     Dosage: 40 MG, QD (1-0-0) (AFTER FOOD)
     Route: 065
  8. MYCOPHENOLATE MOFETIL [Concomitant]
     Active Substance: MYCOPHENOLATE MOFETIL
     Indication: Product used for unknown indication
     Dosage: 750 MG, BID (1-0-1) (1.5 G/DAY)
     Route: 065
  9. MYCOPHENOLATE MOFETIL [Concomitant]
     Active Substance: MYCOPHENOLATE MOFETIL
     Dosage: 500 MG, TID (1-1-1)
     Route: 065
  10. PROLOMET [Concomitant]
     Indication: Product used for unknown indication
     Dosage: 50 MG, BID (1-0-1) (6AM-0-6PM)
     Route: 065
  11. NIFEDIPINE [Concomitant]
     Active Substance: NIFEDIPINE
     Indication: Product used for unknown indication
     Dosage: 20 MG, TID (1-1-1) (7AM-3PM-11PM)
     Route: 065
  12. ARKAMIN [Concomitant]
     Indication: Product used for unknown indication
     Dosage: 0.1 MG, TID (2-2-2)
     Route: 065
  13. ARKAMIN [Concomitant]
     Dosage: 0.1 MG, TID (1/2-1/2-1/2) (8AM-4PM-12AM)
     Route: 065
  14. ARKAMIN [Concomitant]
     Dosage: 0.1 MG, TID (1-1-1)
     Route: 065
  15. CALCIUM CARBONATE\CHOLECALCIFEROL [Concomitant]
     Active Substance: CALCIUM CARBONATE\CHOLECALCIFEROL
     Indication: Product used for unknown indication
     Dosage: 500 MG, TID (1-1-1)
     Route: 065
  16. CALCIUM CARBONATE\CHOLECALCIFEROL [Concomitant]
     Active Substance: CALCIUM CARBONATE\CHOLECALCIFEROL
     Dosage: 500 MG, BID (1-0-1)
     Route: 065
  17. SEPTRAN [Concomitant]
     Indication: Product used for unknown indication
     Dosage: UNK, QD (0-0-1/2)
     Route: 065
  18. PAN [Concomitant]
     Indication: Product used for unknown indication
     Dosage: 40 MG, QD (1-0-0) (BEFORE FOOD)
     Route: 065
  19. DUPHALAC [Concomitant]
     Active Substance: LACTULOSE
     Indication: Product used for unknown indication
     Dosage: UNK (15 ML HS)
     Route: 065
  20. CHLORHEXIDINE [Concomitant]
     Active Substance: CHLORHEXIDINE
     Indication: Product used for unknown indication
     Dosage: UNK, TID (1-1-1)
     Route: 065
  21. CANDID [Concomitant]
     Indication: Product used for unknown indication
     Dosage: UNK, TID 8 DROPS (1-1-1) (AFTER FOOD)
     Route: 065
  22. CEFIXIME [Concomitant]
     Active Substance: CEFIXIME
     Indication: Product used for unknown indication
     Dosage: 200 MG, BID (1-0-1) FOR 5 DAYS
     Route: 065
  23. INSUGEN R [Concomitant]
     Indication: Product used for unknown indication
     Dosage: UNK
     Route: 058
  24. PANTOCID [Concomitant]
     Indication: Product used for unknown indication
     Dosage: 40 MG, QD (1-0-0) BF
     Route: 065
  25. CYCLOSPORINE [Concomitant]
     Active Substance: CYCLOSPORINE
     Indication: Product used for unknown indication
     Dosage: UNK, BID (100MG-0-50MG) (9AM-0-9PM)
     Route: 065
  26. BACTRIM DS [Concomitant]
     Active Substance: SULFAMETHOXAZOLE\TRIMETHOPRIM
     Indication: Product used for unknown indication
     Dosage: UNK, QD (0-0-1/2)
     Route: 065
  27. SOLU-MEDROL [Concomitant]
     Active Substance: METHYLPREDNISOLONE SODIUM SUCCINATE
     Indication: Product used for unknown indication
     Dosage: 1 DOSAGE FORM (2 G)
     Route: 065
  28. BASILIXIMAB [Concomitant]
     Active Substance: BASILIXIMAB
     Indication: Product used for unknown indication
     Dosage: 20 MG (D 1)
     Route: 065
  29. BASILIXIMAB [Concomitant]
     Active Substance: BASILIXIMAB
     Dosage: 20 MG (D 4)
     Route: 065
  30. BETADINE [Concomitant]
     Active Substance: POVIDONE-IODINE
     Indication: Product used for unknown indication
     Dosage: UNK (WASH TWICE)
     Route: 065

REACTIONS (19)
  - Kidney transplant rejection [Unknown]
  - Transplant dysfunction [Recovering/Resolving]
  - Renal tubular injury [Unknown]
  - Arteritis [Unknown]
  - Glomerulonephritis [Unknown]
  - Vascular injury [Unknown]
  - Renal tubular necrosis [Unknown]
  - Arteriovenous fistula thrombosis [Unknown]
  - Pancytopenia [Unknown]
  - Hyperbilirubinaemia [Unknown]
  - Renal atrophy [Unknown]
  - Thrombotic microangiopathy [Unknown]
  - Staphylococcal infection [Unknown]
  - Urethritis [Unknown]
  - Blood lactate dehydrogenase increased [Unknown]
  - Right ventricular hypertrophy [Unknown]
  - Bladder dilatation [Unknown]
  - Blood pressure fluctuation [Unknown]
  - Blood creatinine increased [Recovering/Resolving]

NARRATIVE: CASE EVENT DATE: 20210429
